FAERS Safety Report 7537889-3 (Version None)
Quarter: 2011Q2

REPORT INFORMATION
  Report Type: 
  Country: None (occurrence: None)
  Receive Date: 20110609
  Receipt Date: 20110603
  Transmission Date: 20111010
  Serious: Yes (Hospitalization)
  Sender: FDA-Public Use
  Company Number: IE-AMGEN-IRLSP2011028798

PATIENT
  Sex: Female

DRUGS (7)
  1. VALTREX [Concomitant]
  2. THALIDOMIDE [Concomitant]
  3. PANTOPRAZOLE [Concomitant]
  4. PREDNISOLONE [Concomitant]
  5. RAMILO [Concomitant]
  6. ARANESP [Suspect]
     Indication: PRODUCT USED FOR UNKNOWN INDICATION
     Dosage: 500 A?G, 3 TIMES/WK
     Route: 058
     Dates: start: 20110331
  7. AMLODIPINE [Concomitant]

REACTIONS (1)
  - HOSPITALISATION [None]
